FAERS Safety Report 8030874-7 (Version None)
Quarter: 2011Q4

REPORT INFORMATION
  Report Type: 
  Country: None (occurrence: None)
  Receive Date: 20111202
  Receipt Date: 20100915
  Transmission Date: 20120403
  Serious: Yes (Hospitalization)
  Sender: FDA-Public Use
  Company Number: 2010SP049199

PATIENT
  Age: 37 Year
  Sex: Female
  Weight: 58.9676 kg

DRUGS (2)
  1. NUVARING [Suspect]
     Indication: CONTRACEPTION
     Dates: start: 20031101, end: 20070101
  2. NUVARING [Suspect]
     Indication: CONTRACEPTION
     Dates: start: 20080726, end: 20080918

REACTIONS (1)
  - DEEP VEIN THROMBOSIS [None]
